FAERS Safety Report 9375215 (Version 2)
Quarter: 2013Q3

REPORT INFORMATION
  Report Type: Report from Study
  Country: US (occurrence: US)
  Receive Date: 20130628
  Receipt Date: 20130724
  Transmission Date: 20140515
  Serious: No
  Sender: FDA-Public Use
  Company Number: US-VERTEX PHARMACEUTICALS INC-2013-007515

PATIENT
  Sex: Male

DRUGS (9)
  1. VX-950 (TELAPREVIR) [Suspect]
     Indication: HEPATITIS C
     Dosage: 750 MG, TID
     Route: 048
     Dates: start: 20120907, end: 20121201
  2. PEGASYS [Suspect]
     Indication: HEPATITIS C
     Dosage: 180 ?G, QW
     Route: 058
     Dates: start: 20120907
  3. PEGASYS [Suspect]
     Dosage: UNK
     Dates: start: 20130616
  4. RIBAVIRIN [Suspect]
     Indication: HEPATITIS C
     Dosage: 600 MG IN AM, 400 MG IN PM
     Route: 048
     Dates: start: 20120907
  5. RIBAVIRIN [Suspect]
     Dosage: UNK
     Dates: start: 20130616
  6. MARIJUANA [Concomitant]
  7. VITAMIN D3 [Concomitant]
     Dosage: 1000 M/ML, QD
  8. ZOLOFT [Concomitant]
     Dosage: 100 MG, QD
  9. TRAZODONE [Concomitant]
     Dosage: 80 MG, QD
     Route: 048

REACTIONS (1)
  - Tooth abscess [Recovered/Resolved]
